FAERS Safety Report 5701724-6 (Version None)
Quarter: 2008Q2

REPORT INFORMATION
  Report Type: 
  Country: None (occurrence: None)
  Receive Date: 20080409
  Receipt Date: 20080409
  Transmission Date: 20081010
  Serious: Yes (Life-Threatening, Hospitalization, Disabling, Other)
  Sender: FDA-Public Use
  Company Number: None

PATIENT
  Age: 62 Year
  Sex: Male
  Weight: 145.151 kg

DRUGS (12)
  1. ABILIFY [Suspect]
     Indication: BIPOLAR I DISORDER
     Dosage: 15 MG. DAILY PO
     Route: 048
     Dates: start: 20040920, end: 20040926
  2. ABILIFY [Suspect]
     Indication: DEPRESSION
     Dosage: 15 MG. DAILY PO
     Route: 048
     Dates: start: 20040920, end: 20040926
  3. PREDNISONE [Concomitant]
  4. IMURAN [Concomitant]
  5. COUMODIN [Concomitant]
  6. GLUCOPHAGE [Concomitant]
  7. LISINOPRIL [Concomitant]
  8. SYTHROID [Concomitant]
  9. LAMICTAL [Concomitant]
  10. WELLBUTRIN [Concomitant]
  11. TRAZODONE HCL [Concomitant]
  12. SIMVASTATIN [Concomitant]

REACTIONS (6)
  - DIPLOPIA [None]
  - DYSPHAGIA [None]
  - ECONOMIC PROBLEM [None]
  - MYASTHENIA GRAVIS [None]
  - NEUROLOGICAL SYMPTOM [None]
  - SPEECH DISORDER [None]
